FAERS Safety Report 5492397-9 (Version None)
Quarter: 2007Q4

REPORT INFORMATION
  Report Type: 
  Country: None (occurrence: None)
  Receive Date: 20071022
  Receipt Date: 20071016
  Transmission Date: 20080405
  Serious: Yes (Hospitalization, Other)
  Sender: FDA-Public Use
  Company Number: HQWYE872309DEC04

PATIENT
  Sex: Female

DRUGS (10)
  1. RAPAMUNE [Suspect]
     Indication: PROPHYLAXIS AGAINST TRANSPLANT REJECTION
     Dosage: UNSPECIFIED
     Route: 048
     Dates: end: 20041206
  2. VORICONAZOLE [Suspect]
     Indication: MUCORMYCOSIS
     Dosage: UNSPECIFIED
  3. CASPOFUNGIN ACETATE [Suspect]
     Indication: BRONCHOPULMONARY ASPERGILLOSIS
     Dosage: UNSPECIFIED
     Route: 042
     Dates: start: 20040101, end: 20041201
  4. PREDNISONE [Suspect]
     Indication: PROPHYLAXIS AGAINST TRANSPLANT REJECTION
     Dosage: UNSPECIFIED
     Route: 048
     Dates: end: 20041201
  5. PREDNISONE [Suspect]
     Route: 048
     Dates: start: 20041201
  6. TACROLIMUS [Suspect]
     Indication: PROPHYLAXIS AGAINST TRANSPLANT REJECTION
     Dosage: UNSPECIFIED
     Route: 048
  7. INH [Suspect]
     Indication: TUBERCULOSIS SKIN TEST POSITIVE
     Dates: end: 20041201
  8. INH [Suspect]
     Dosage: UNSPECIFIED
     Dates: start: 20041201
  9. FLUCONAZOLE [Suspect]
     Indication: MUCORMYCOSIS
     Dosage: UNSPECIFIED
  10. DACLIZUMAB [Suspect]
     Indication: PROPHYLAXIS AGAINST TRANSPLANT REJECTION
     Dosage: UNSPECIFIED

REACTIONS (4)
  - DRUG TOXICITY [None]
  - LIVER FUNCTION TEST ABNORMAL [None]
  - MUCORMYCOSIS [None]
  - RENAL FAILURE ACUTE [None]
